FAERS Safety Report 5214074-1 (Version None)
Quarter: 2007Q1

REPORT INFORMATION
  Report Type: 
  Country: None (occurrence: None)
  Receive Date: 20070122
  Receipt Date: 20070109
  Transmission Date: 20070707
  Serious: Yes (Other)
  Sender: FDA-Public Use
  Company Number: BR-BRISTOL-MYERS SQUIBB COMPANY-13639190

PATIENT
  Age: 63 Year
  Sex: Female

DRUGS (1)
  1. CAPTOPRIL AND HYDROCHLOROTHIAZIDE [Suspect]
     Route: 048

REACTIONS (4)
  - CEREBROVASCULAR ACCIDENT [None]
  - DIABETES MELLITUS [None]
  - HYPERTENSION [None]
  - HYPOAESTHESIA [None]
